FAERS Safety Report 21641409 (Version 3)
Quarter: 2022Q4

REPORT INFORMATION
  Report Type: Report from Study
  Country: DE (occurrence: DE)
  Receive Date: 20221125
  Receipt Date: 20221208
  Transmission Date: 20230113
  Serious: Yes (Hospitalization)
  Sender: FDA-Public Use
  Company Number: DE-002147023-NVSC2022DE261541

PATIENT
  Age: 78 Year
  Sex: Female
  Weight: 64.4 kg

DRUGS (5)
  1. TRAMETINIB [Suspect]
     Active Substance: TRAMETINIB
     Indication: Non-small cell lung cancer
     Dosage: 0.5 MG, QD (TOTAL DAILY DOSE)
     Route: 048
     Dates: start: 20220726, end: 20220921
  2. TRAMETINIB [Suspect]
     Active Substance: TRAMETINIB
     Dosage: 0.5 MG, QD (TOTAL DAILY DOSE)
     Route: 048
     Dates: start: 20221008, end: 20221117
  3. NAZARTINIB [Suspect]
     Active Substance: NAZARTINIB
     Indication: Non-small cell lung cancer
     Dosage: 100 MG, QD (TOTAL DAILY DOSE)
     Route: 048
     Dates: start: 20220726, end: 20220921
  4. NAZARTINIB [Suspect]
     Active Substance: NAZARTINIB
     Dosage: 75 MG, QD (TOTAL DAILY DOSE)
     Route: 048
     Dates: start: 20221008, end: 20221117
  5. NAZARTINIB [Suspect]
     Active Substance: NAZARTINIB
     Dosage: 75 MG, QD (TOTAL DAILY DOSE)
     Route: 048
     Dates: start: 20221125, end: 20221129

REACTIONS (2)
  - Arthritis infective [Not Recovered/Not Resolved]
  - Pelvic fracture [Not Recovered/Not Resolved]

NARRATIVE: CASE EVENT DATE: 20221116
